FAERS Safety Report 19589576 (Version 2)
Quarter: 2021Q3

REPORT INFORMATION
  Report Type: Spontaneous
  Country: US (occurrence: US)
  Receive Date: 20210721
  Receipt Date: 20210810
  Transmission Date: 20211014
  Serious: No
  Sender: FDA-Public Use
  Company Number: US-AMGEN-USASP2021110050

PATIENT
  Age: 59 Year
  Sex: Female
  Weight: 52.3 kg

DRUGS (3)
  1. KANJINTI [Suspect]
     Active Substance: TRASTUZUMAB-ANNS
     Dosage: 366 MILLIGRAM, Q4WK
     Route: 042
     Dates: start: 20210621
  2. PERJETA [Concomitant]
     Active Substance: PERTUZUMAB
  3. KANJINTI [Suspect]
     Active Substance: TRASTUZUMAB-ANNS
     Indication: PRODUCT USED FOR UNKNOWN INDICATION
     Dosage: 340 MILLIGRAM, Q28D
     Route: 042
     Dates: start: 20210218

REACTIONS (1)
  - Food poisoning [Recovered/Resolved]

NARRATIVE: CASE EVENT DATE: 20210712
